FAERS Safety Report 9125218 (Version 2)
Quarter: 2013Q1

REPORT INFORMATION
  Report Type: Spontaneous
  Country: FI (occurrence: FI)
  Receive Date: 20130227
  Receipt Date: 20130315
  Transmission Date: 20140127
  Serious: Yes (Other)
  Sender: FDA-Public Use
  Company Number: FI-ALEXION-A201300280

PATIENT
  Age: 37 Year
  Sex: Female

DRUGS (7)
  1. SOLIRIS 300MG [Suspect]
     Indication: PAROXYSMAL NOCTURNAL HAEMOGLOBINURIA
     Dosage: 600 MG, QW
     Route: 042
     Dates: start: 20110930, end: 20111021
  2. SOLIRIS 300MG [Suspect]
     Dosage: 900 MG, Q2W
     Route: 042
     Dates: start: 20111028
  3. KLEXANE [Concomitant]
     Indication: PROPHYLAXIS
     Dosage: 40 MG, QD
     Route: 058
     Dates: start: 20120816, end: 20120926
  4. RETACRIT [Concomitant]
     Indication: ANAEMIA
     Dosage: 30000 IU, UNK
     Route: 058
     Dates: start: 20120301
  5. V-PENICILLIN [Concomitant]
     Indication: PROPHYLAXIS
     Dosage: 1 G, BID
     Route: 048
     Dates: start: 20110930
  6. FOLVITE [Concomitant]
     Indication: ANAEMIA
     Dosage: 1 MG, QD
     Route: 048
     Dates: start: 2000
  7. KALCIPOS-D [Concomitant]
     Indication: OSTEOPENIA
     Dosage: 1 DF, BID
     Route: 048
     Dates: start: 2000

REACTIONS (3)
  - Abortion spontaneous [Recovered/Resolved]
  - Haemoglobin decreased [Unknown]
  - Foetal exposure during pregnancy [Unknown]
